FAERS Safety Report 24464102 (Version 1)
Quarter: 2024Q4

REPORT INFORMATION
  Report Type: Report from Study
  Country: US (occurrence: US)
  Receive Date: 20241018
  Receipt Date: 20241018
  Transmission Date: 20250114
  Serious: No
  Sender: ROCHE
  Company Number: US-ROCHE-3499930

PATIENT
  Sex: Female

DRUGS (5)
  1. XOLAIR [Suspect]
     Active Substance: OMALIZUMAB
     Indication: Idiopathic urticaria
     Dosage: 3 150MG SHOTS IN HER HIP FOR A TOTAL 450 MG EVERY 3 WEEKS;ONGOING: YES
     Route: 058
     Dates: start: 2020
  2. XOLAIR [Suspect]
     Active Substance: OMALIZUMAB
     Dosage: NO
     Route: 058
     Dates: end: 2020
  3. XOLAIR [Suspect]
     Active Substance: OMALIZUMAB
     Dosage: NO
     Route: 058
     Dates: start: 20230316
  4. PREDNISONE [Concomitant]
     Active Substance: PREDNISONE
  5. ZYRTEC [Concomitant]
     Active Substance: CETIRIZINE HYDROCHLORIDE

REACTIONS (11)
  - Paraesthesia oral [Unknown]
  - Swelling [Recovering/Resolving]
  - Odynophagia [Recovered/Resolved]
  - Oedema [Recovered/Resolved]
  - Discomfort [Recovered/Resolved]
  - Pain [Recovered/Resolved]
  - Discomfort [Not Recovered/Not Resolved]
  - Dysphagia [Recovering/Resolving]
  - Off label use [Unknown]
  - Urticaria [Not Recovered/Not Resolved]
  - Intentional product use issue [Unknown]
